FAERS Safety Report 13698282 (Version 1)
Quarter: 2017Q2

REPORT INFORMATION
  Report Type: Spontaneous
  Country: US (occurrence: US)
  Receive Date: 20170628
  Receipt Date: 20170628
  Transmission Date: 20170830
  Serious: Yes (Other)
  Sender: FDA-Public Use
  Company Number: US-SA-2017SA112931

PATIENT
  Age: 36 Year
  Sex: Female

DRUGS (1)
  1. ICY HOT MEDICATED NO MESS APPLICATOR [Suspect]
     Active Substance: MENTHOL
     Route: 065

REACTIONS (10)
  - Pain [Unknown]
  - Skin discolouration [Unknown]
  - Skin fissures [Unknown]
  - Skin exfoliation [Unknown]
  - Dizziness [Unknown]
  - Burns second degree [Unknown]
  - Scar [Unknown]
  - Blister [Unknown]
  - Erythema [Unknown]
  - Skin texture abnormal [Unknown]

NARRATIVE: CASE EVENT DATE: 20170612
